FAERS Safety Report 5940885-0 (Version None)
Quarter: 2008Q4

REPORT INFORMATION
  Report Type: 
  Country: None (occurrence: None)
  Receive Date: 20081031
  Receipt Date: 20081021
  Transmission Date: 20090506
  Serious: Yes (Other)
  Sender: FDA-Public Use
  Company Number: 2008AP002849

PATIENT
  Age: 52 Year
  Sex: Female

DRUGS (5)
  1. CITALOPRAM HYDROBROMIDE [Suspect]
     Indication: DEPRESSION
  2. PRASTERONE (PRASTERONE) [Suspect]
  3. ESTROGENS SOL/INJ [Suspect]
  4. PROGESTERONE [Suspect]
  5. TESTOSTERONE [Concomitant]

REACTIONS (1)
  - FEMALE SEXUAL AROUSAL DISORDER [None]
